FAERS Safety Report 16449297 (Version 3)
Quarter: 2019Q3

REPORT INFORMATION
  Report Type: Spontaneous
  Country: US (occurrence: US)
  Receive Date: 20190619
  Receipt Date: 20190822
  Transmission Date: 20191004
  Serious: Yes (Other)
  Sender: FDA-Public Use
  Company Number: US-UNITED THERAPEUTICS-UNT-2019-010532

PATIENT
  Age: 10 Month
  Sex: Male

DRUGS (3)
  1. REMODULIN [Suspect]
     Active Substance: TREPROSTINIL
     Indication: PULMONARY ARTERIAL HYPERTENSION
     Dosage: 0.117 ?G/KG, CONTINUING
     Route: 058
     Dates: start: 20190530
  2. REMODULIN [Suspect]
     Active Substance: TREPROSTINIL
     Dosage: 0.1063 ?G/KG, CONTINUING
     Route: 058
     Dates: start: 201905
  3. IMODIUM [Suspect]
     Active Substance: LOPERAMIDE HYDROCHLORIDE
     Indication: DIARRHOEA
     Dosage: UNK
     Route: 065
     Dates: start: 2019

REACTIONS (9)
  - Diarrhoea [Not Recovered/Not Resolved]
  - Lip swelling [Unknown]
  - Dermatitis diaper [Unknown]
  - Dermatitis contact [Unknown]
  - Swelling of eyelid [Unknown]
  - Muscle spasms [Unknown]
  - Hypersensitivity [Unknown]
  - Infusion site pain [Unknown]
  - Flushing [Recovered/Resolved]

NARRATIVE: CASE EVENT DATE: 20190816
